FAERS Safety Report 8033318-4 (Version None)
Quarter: 2011Q4

REPORT INFORMATION
  Report Type: 
  Country: None (occurrence: None)
  Receive Date: 20111202
  Receipt Date: 20110406
  Transmission Date: 20120403
  Serious: Yes (Other)
  Sender: FDA-Public Use
  Company Number: WAES 1104USA00740

PATIENT
  Age: 83 Year
  Sex: Female

DRUGS (4)
  1. IVANCIC AND SONS OSTEOPLEX B [Concomitant]
  2. CALCIUM (UNSPECIFIED) [Concomitant]
  3. PRILOSEC [Concomitant]
  4. FOSAMAX [Suspect]
     Indication: ARTHRITIS
     Dosage: UNK/UNK/PO
     Route: 048
     Dates: start: 20010401, end: 20101106

REACTIONS (3)
  - IMPAIRED HEALING [None]
  - OSTEONECROSIS OF JAW [None]
  - EXOSTOSIS [None]
